FAERS Safety Report 10334990 (Version 1)
Quarter: 2014Q3

REPORT INFORMATION
  Report Type: Spontaneous
  Country: US (occurrence: None)
  Receive Date: 20140721
  Receipt Date: 20140721
  Transmission Date: 20150326
  Serious: Yes (Hospitalization)
  Sender: FDA-Public Use
  Company Number: COM-002409

PATIENT
  Age: 32 Year
  Sex: Female
  Weight: 80.29 kg

DRUGS (1)
  1. MUCUS RELIEF SEVERE CONGESTION COUGH MAXIMUM STRENGTH [Suspect]
     Active Substance: DEXTROMETHORPHAN HYDROBROMIDE\GUAIFENESIN\PHENYLEPHRINE HYDROCHLORIDE
     Indication: PULMONARY CONGESTION
     Route: 048
     Dates: start: 20140704

REACTIONS (2)
  - Drug effect decreased [None]
  - Drug hypersensitivity [None]

NARRATIVE: CASE EVENT DATE: 20140704
